FAERS Safety Report 15485465 (Version 1)
Quarter: 2018Q4

REPORT INFORMATION
  Report Type: Spontaneous
  Country: FR (occurrence: FR)
  Receive Date: 20181010
  Receipt Date: 20181010
  Transmission Date: 20190205
  Serious: Yes (Hospitalization)
  Sender: FDA-Public Use
  Company Number: PHHY2018FR119875

PATIENT
  Age: 47 Year
  Sex: Male
  Weight: 95 kg

DRUGS (5)
  1. FUROSEMIDE RENAUDIN [Suspect]
     Active Substance: FUROSEMIDE
     Indication: OEDEMA
     Dosage: 3 ?G/L, QD
     Route: 042
     Dates: start: 20180113, end: 20180114
  2. FLAGYL [Suspect]
     Active Substance: METRONIDAZOLE\METRONIDAZOLE HYDROCHLORIDE
     Indication: PERITONITIS
     Dosage: 1.5 G, QD
     Route: 042
     Dates: start: 20180107, end: 20180123
  3. ACUPAN [Suspect]
     Active Substance: NEFOPAM HYDROCHLORIDE
     Indication: PROCEDURAL PAIN
     Dosage: 80 MG, QD
     Route: 030
     Dates: start: 20180113, end: 20180122
  4. ERYTHROCINE [Suspect]
     Active Substance: ERYTHROMYCIN
     Indication: PERITONITIS
     Dosage: 750 MG, QD
     Route: 042
     Dates: start: 20180113, end: 20180113
  5. AMOXICILLIN AND CLAVULANATE POTASSIUM [Suspect]
     Active Substance: AMOXICILLIN\CLAVULANATE POTASSIUM
     Indication: PERITONITIS
     Dosage: 6 G, QD
     Route: 042
     Dates: start: 20180113, end: 20180115

REACTIONS (3)
  - Neuropathy peripheral [Not Recovered/Not Resolved]
  - Back pain [Recovered/Resolved]
  - Headache [Recovered/Resolved]

NARRATIVE: CASE EVENT DATE: 20180114
